FAERS Safety Report 6982109-1 (Version None)
Quarter: 2010Q3

REPORT INFORMATION
  Report Type: 
  Country: None (occurrence: None)
  Receive Date: 20100914
  Receipt Date: 20091215
  Transmission Date: 20110219
  Serious: No
  Sender: FDA-Public Use
  Company Number: US-PFIZER INC-2009293633

PATIENT
  Sex: Female
  Weight: 72.6 kg

DRUGS (2)
  1. LYRICA [Suspect]
     Dosage: UNK
  2. NEURONTIN [Suspect]
     Indication: NEUROPATHY PERIPHERAL
     Dosage: 300 MG, 3X/DAY
     Route: 048
     Dates: start: 20091103

REACTIONS (1)
  - PAIN [None]
